FAERS Safety Report 10068213 (Version 1)
Quarter: 2014Q2

REPORT INFORMATION
  Report Type: Spontaneous
  Country: US (occurrence: US)
  Receive Date: 20140409
  Receipt Date: 20140409
  Transmission Date: 20141212
  Serious: Yes (Other)
  Sender: FDA-Public Use
  Company Number: US-B.I. PHARMACEUTICALS,INC./RIDGEFIELD-2014-BI-15285GD

PATIENT
  Sex: Male

DRUGS (2)
  1. SERTRALINE [Suspect]
     Indication: TOURETTE^S DISORDER
     Route: 065
  2. CLONIDINE [Suspect]
     Indication: TOURETTE^S DISORDER
     Route: 065

REACTIONS (1)
  - No therapeutic response [Unknown]
